APPROVED DRUG PRODUCT: SULINDAC
Active Ingredient: SULINDAC
Strength: 200MG
Dosage Form/Route: TABLET;ORAL
Application: A072711 | Product #001 | TE Code: AB
Applicant: EPIC PHARMA LLC
Approved: Mar 25, 1991 | RLD: No | RS: No | Type: RX